FAERS Safety Report 24791345 (Version 6)
Quarter: 2025Q4

REPORT INFORMATION
  Report Type: Report from Study
  Country: US (occurrence: US)
  Receive Date: 20241231
  Receipt Date: 20251121
  Transmission Date: 20260118
  Serious: Yes (Hospitalization, Other)
  Sender: ABBVIE
  Company Number: US-ABBVIE-6066809

PATIENT
  Age: 80 Year
  Sex: Male
  Weight: 65.77 kg

DRUGS (19)
  1. SKYRIZI [Suspect]
     Active Substance: RISANKIZUMAB-RZAA
     Indication: Psoriasis
     Dosage: 150 MILLIGRAM
     Route: 058
     Dates: start: 20230912
  2. SKYRIZI [Suspect]
     Active Substance: RISANKIZUMAB-RZAA
     Indication: Psoriatic arthropathy
  3. GEMTESA [Concomitant]
     Active Substance: VIBEGRON
     Indication: Bladder disorder
  4. NITROGLYCERIN [Concomitant]
     Active Substance: NITROGLYCERIN
     Indication: Product used for unknown indication
     Dosage: FREQUENCY TEXT: AS NEEDED
  5. REFRESH TEARS PF [Concomitant]
     Active Substance: CARBOXYMETHYLCELLULOSE SODIUM\GLYCERIN
     Indication: Product used for unknown indication
  6. BIOFLAVONOIDS [Concomitant]
     Active Substance: BIOFLAVONOIDS
     Indication: Product used for unknown indication
     Dosage: 500 MILLIGRAM
  7. ARICEPT [Concomitant]
     Active Substance: DONEPEZIL HYDROCHLORIDE
     Indication: Memory impairment
  8. MINERALS\VITAMINS [Concomitant]
     Active Substance: MINERALS\VITAMINS
     Indication: Eye disorder
  9. PANTOPRAZOLE [Concomitant]
     Active Substance: PANTOPRAZOLE
     Indication: Gastrointestinal disorder
  10. VITAMIN B COMPLEX [Concomitant]
     Active Substance: CYANOCOBALAMIN\DEXPANTHENOL\NIACINAMIDE\PYRIDOXINE HYDROCHLORIDE\RIBOFLAVIN 5^-PHOSPHATE SODIUM\THIA
     Indication: Product used for unknown indication
  11. ASPIRIN [Concomitant]
     Active Substance: ASPIRIN
     Indication: Anticoagulant therapy
     Dosage: 81 MILLIGRAM
  12. LACTASE [Concomitant]
     Active Substance: LACTASE
     Indication: Lactose intolerance
     Dosage: FREQUENCY TEXT: AS NEEDED
  13. MUPIROCIN [Concomitant]
     Active Substance: MUPIROCIN
     Indication: Product used for unknown indication
  14. LOSARTAN [Concomitant]
     Active Substance: LOSARTAN
     Indication: Blood pressure measurement
  15. VITAMIN E [Concomitant]
     Active Substance: .ALPHA.-TOCOPHEROL
     Indication: Product used for unknown indication
     Dosage: 180 MILLIGRAM
  16. CLOPIDOGREL [Concomitant]
     Active Substance: CLOPIDOGREL BISULFATE
     Indication: Anticoagulant therapy
     Dosage: 75 MILLIGRAM
  17. CLOBETASOL [Concomitant]
     Active Substance: CLOBETASOL
     Indication: Skin disorder
  18. VITAMIN D3 [Concomitant]
     Active Substance: CHOLECALCIFEROL
     Indication: Product used for unknown indication
  19. KETOCONAZOLE [Concomitant]
     Active Substance: KETOCONAZOLE
     Indication: Product used for unknown indication

REACTIONS (21)
  - Coronary artery occlusion [Recovering/Resolving]
  - Cataract [Recovered/Resolved]
  - Vascular dementia [Not Recovered/Not Resolved]
  - Therapeutic response shortened [Recovered/Resolved]
  - Localised infection [Recovering/Resolving]
  - Dementia Alzheimer^s type [Not Recovered/Not Resolved]
  - Depression [Unknown]
  - Weight decreased [Unknown]
  - Osteoarthritis [Not Recovered/Not Resolved]
  - Myocardial infarction [Recovering/Resolving]
  - Nasopharyngitis [Unknown]
  - Basal cell carcinoma [Recovering/Resolving]
  - Anxiety [Unknown]
  - Dental care [Unknown]
  - Pruritus [Recovered/Resolved]
  - Memory impairment [Unknown]
  - Blood pressure increased [Recovered/Resolved]
  - Dizziness [Recovering/Resolving]
  - Cerebrovascular accident [Not Recovered/Not Resolved]
  - Eye infection [Not Recovered/Not Resolved]
  - Pustule [Unknown]

NARRATIVE: CASE EVENT DATE: 20230101
